FAERS Safety Report 11325042 (Version 1)
Quarter: 2015Q3

REPORT INFORMATION
  Report Type: Spontaneous
  Country: DE (occurrence: DE)
  Receive Date: 20150730
  Receipt Date: 20150730
  Transmission Date: 20151125
  Serious: Yes (Other)
  Sender: FDA-Public Use
  Company Number: PHHY2015DE070950

PATIENT
  Age: 28 Year
  Sex: Male
  Weight: 87 kg

DRUGS (2)
  1. GILENYA [Suspect]
     Active Substance: FINGOLIMOD HYDROCHLORIDE
     Indication: MULTIPLE SCLEROSIS
     Dosage: 0.5 MG, QD
     Route: 048
     Dates: start: 201504, end: 20150611
  2. IBUPROFENE [Concomitant]
     Active Substance: IBUPROFEN
     Indication: MIGRAINE
     Dosage: 400 MG, PRN
     Route: 048

REACTIONS (2)
  - Gamma-glutamyltransferase increased [Recovering/Resolving]
  - Liver injury [Unknown]

NARRATIVE: CASE EVENT DATE: 20150519
